FAERS Safety Report 8935263 (Version 1)
Quarter: 2012Q4

REPORT INFORMATION
  Report Type: 
  Country: AT (occurrence: AT)
  Receive Date: 20121129
  Receipt Date: 20121129
  Transmission Date: 20130627
  Serious: Yes (Hospitalization)
  Sender: FDA-Public Use
  Company Number: AT-MYLANLABS-2012S1024020

PATIENT
  Age: 51 Year
  Sex: Male

DRUGS (4)
  1. FLUOROURACIL [Suspect]
     Indication: RECTAL CANCER
     Dosage: 400 mg/m2
     Route: 040
  2. FLUOROURACIL [Suspect]
     Indication: RECTAL CANCER
     Dosage: 2400 mg/m2 over 48 hours
     Route: 041
  3. FOLINIC ACID [Concomitant]
     Indication: RECTAL CANCER
     Dosage: 400 mg/m2
     Route: 065
  4. OXALIPLATIN [Concomitant]
     Indication: RECTAL CANCER
     Dosage: 85 mg/m2
     Route: 065

REACTIONS (2)
  - Arteriospasm coronary [Recovered/Resolved]
  - Cardiac failure acute [Recovering/Resolving]
